FAERS Safety Report 7430991-6 (Version None)
Quarter: 2011Q2

REPORT INFORMATION
  Report Type: 
  Country: None (occurrence: None)
  Receive Date: 20110421
  Receipt Date: 20110411
  Transmission Date: 20111010
  Serious: Yes (Hospitalization, Disabling, Other)
  Sender: FDA-Public Use
  Company Number: GB-BAYER-201026029GPV

PATIENT
  Sex: Female

DRUGS (4)
  1. TRAMADOL HCL [Concomitant]
     Indication: PRODUCT USED FOR UNKNOWN INDICATION
  2. CIPROFLOXACIN [Suspect]
     Indication: CYSTITIS
     Dosage: 500 MG, BID
     Dates: start: 20091021, end: 20091023
  3. MORPHINE [Concomitant]
     Dosage: UNK
     Dates: start: 20091021
  4. MUSCLE RELAXANTS [Concomitant]
     Dosage: UNK
     Dates: start: 20091021

REACTIONS (17)
  - PLANTAR FASCIITIS [None]
  - PAIN [None]
  - ARTHROPATHY [None]
  - PAIN IN EXTREMITY [None]
  - CRYING [None]
  - NERVOUS SYSTEM DISORDER [None]
  - PERIPHERAL COLDNESS [None]
  - PARAESTHESIA [None]
  - COLD SWEAT [None]
  - DEPRESSION [None]
  - ARTHRALGIA [None]
  - SKIN WARM [None]
  - CHEST DISCOMFORT [None]
  - MUSCULAR WEAKNESS [None]
  - TENDONITIS [None]
  - HYPOAESTHESIA [None]
  - VASODILATATION [None]
